FAERS Safety Report 15275726 (Version 1)
Quarter: 2018Q3

REPORT INFORMATION
  Report Type: Spontaneous
  Country: US (occurrence: US)
  Receive Date: 20180728
  Receipt Date: 20180728
  Transmission Date: 20181010
  Serious: Yes (Other)
  Sender: FDA-Public Use
  Company Number: None

PATIENT
  Age: 3 Year
  Sex: Female
  Weight: 14.4 kg

DRUGS (1)
  1. CIPRODEX [Suspect]
     Active Substance: CIPROFLOXACIN HYDROCHLORIDE\DEXAMETHASONE
     Indication: INFECTION PROPHYLAXIS
     Dosage: ?          QUANTITY:4 DROP(S);?
     Route: 001
     Dates: start: 20180724, end: 20180725

REACTIONS (6)
  - Ear swelling [None]
  - Scab [None]
  - Dermatitis contact [None]
  - Erythema [None]
  - Swelling face [None]
  - Pruritus [None]

NARRATIVE: CASE EVENT DATE: 20180724
